FAERS Safety Report 25030570 (Version 1)
Quarter: 2025Q1

REPORT INFORMATION
  Report Type: Spontaneous
  Country: US (occurrence: US)
  Receive Date: 20250303
  Receipt Date: 20250303
  Transmission Date: 20250409
  Serious: No
  Sender: AMGEN
  Company Number: US-AMGEN-USASP2025037852

PATIENT
  Age: 61 Year
  Sex: Female

DRUGS (2)
  1. REPATHA [Suspect]
     Active Substance: EVOLOCUMAB
     Indication: Blood cholesterol increased
     Dosage: 140 MILLIGRAM, Q2WK
     Route: 058
     Dates: start: 20241203, end: 202502
  2. LOSARTAN [Concomitant]
     Active Substance: LOSARTAN

REACTIONS (5)
  - Skin swelling [Recovering/Resolving]
  - Rubber sensitivity [Recovering/Resolving]
  - Abdominal distension [Recovering/Resolving]
  - Inappropriate schedule of product administration [Unknown]
  - Erythema [Recovering/Resolving]

NARRATIVE: CASE EVENT DATE: 20250114
